FAERS Safety Report 6110452-7 (Version None)
Quarter: 2009Q1

REPORT INFORMATION
  Report Type: 
  Country: None (occurrence: None)
  Receive Date: 20090310
  Receipt Date: 20090302
  Transmission Date: 20090719
  Serious: Yes (Other)
  Sender: FDA-Public Use
  Company Number: US-GENENTECH-278418

PATIENT

DRUGS (4)
  1. BEVACIZUMAB [Suspect]
     Indication: LYMPHOMA
     Dosage: 7.5 MG/KG, Q3W
     Route: 042
     Dates: start: 20080916
  2. BEVACIZUMAB [Suspect]
     Indication: NEOPLASM
  3. VANDETANIB [Suspect]
     Indication: LYMPHOMA
     Dosage: 200 MG, Q3W
     Route: 048
  4. VANDETANIB [Suspect]
     Indication: NEOPLASM

REACTIONS (1)
  - BLOOD CREATININE INCREASED [None]
